FAERS Safety Report 9373102 (Version 1)
Quarter: 2013Q2

REPORT INFORMATION
  Report Type: Spontaneous
  Country: DK (occurrence: DK)
  Receive Date: 20130627
  Receipt Date: 20130627
  Transmission Date: 20140414
  Serious: Yes (Hospitalization)
  Sender: FDA-Public Use
  Company Number: DK-ELI_LILLY_AND_COMPANY-DK201306007517

PATIENT
  Age: 74 Year
  Sex: Male
  Weight: 90 kg

DRUGS (3)
  1. PRASUGREL HYDROCHLORIDE [Suspect]
     Indication: STENT PLACEMENT
     Dosage: 60 MG, UNK
     Route: 065
     Dates: start: 20110620, end: 20110620
  2. PRASUGREL HYDROCHLORIDE [Suspect]
     Dosage: 10 MG, QD
     Route: 065
     Dates: start: 20110621, end: 20120125
  3. ACETYLSALICYLIC ACID [Concomitant]

REACTIONS (1)
  - Arterial restenosis [Recovered/Resolved]
